FAERS Safety Report 6646723-5 (Version None)
Quarter: 2010Q1

REPORT INFORMATION
  Report Type: 
  Country: None (occurrence: None)
  Receive Date: 20100323
  Receipt Date: 20100317
  Transmission Date: 20100710
  Serious: Yes (Other)
  Sender: FDA-Public Use
  Company Number: ES-AMGEN-UK379360

PATIENT
  Age: 88 Year
  Sex: Male

DRUGS (4)
  1. ARANESP [Suspect]
     Indication: RENAL FAILURE CHRONIC
     Route: 058
  2. ERYTHROPOIETIN HUMAN [Suspect]
     Route: 058
  3. ANTIHYPERTENSIVE MEDICATION NOS [Concomitant]
  4. HORMONE NOS [Concomitant]

REACTIONS (5)
  - ACUTE GENERALISED EXANTHEMATOUS PUSTULOSIS [None]
  - DRUG ERUPTION [None]
  - ERYTHEMA [None]
  - PARAKERATOSIS [None]
  - PRURITUS [None]
